FAERS Safety Report 7075321-7 (Version None)
Quarter: 2010Q4

REPORT INFORMATION
  Report Type: 
  Country: None (occurrence: None)
  Receive Date: 20101030
  Receipt Date: 20101001
  Transmission Date: 20110411
  Serious: No
  Sender: FDA-Public Use
  Company Number: US-WYE-H17305710

PATIENT
  Age: 31 Year
  Sex: Male
  Weight: 88.53 kg

DRUGS (1)
  1. ADVIL PM [Suspect]
     Indication: INSOMNIA
     Dosage: 2 CAPLETS AT NIGHT AS NEEDED
     Route: 048
     Dates: start: 20080101, end: 20100801

REACTIONS (1)
  - DRUG INEFFECTIVE [None]
